FAERS Safety Report 9790255 (Version 2)
Quarter: 2014Q1

REPORT INFORMATION
  Report Type: Spontaneous
  Country: US (occurrence: US)
  Receive Date: 20131231
  Receipt Date: 20140107
  Transmission Date: 20141002
  Serious: No
  Sender: FDA-Public Use
  Company Number: US-009507513-1312USA012289

PATIENT
  Age: 58 Year
  Sex: Female

DRUGS (1)
  1. AZASITE [Suspect]
     Indication: EYE INFECTION
     Dosage: EYE DROPS
     Route: 047
     Dates: start: 20131019

REACTIONS (3)
  - Lacrimation increased [Not Recovered/Not Resolved]
  - Eye infection [Not Recovered/Not Resolved]
  - Incorrect drug administration duration [Unknown]
